FAERS Safety Report 4772964-8 (Version None)
Quarter: 2005Q3

REPORT INFORMATION
  Report Type: 
  Country: None (occurrence: None)
  Receive Date: 20050916
  Receipt Date: 20050909
  Transmission Date: 20060218
  Serious: Yes (Other)
  Sender: FDA-Public Use
  Company Number: 2005126840

PATIENT
  Age: 60 Year
  Sex: Female

DRUGS (4)
  1. ATORVASTATIN CALCIUM [Suspect]
     Indication: BLOOD CHOLESTEROL
     Dosage: (10 MG), ORAL
     Route: 048
     Dates: start: 20020101
  2. CANDESARTAN (CANDESARTAN) [Suspect]
     Indication: HYPERTENSION
     Dosage: 4 MG (4 MG, 1 IN 1 D), ORAL
     Route: 048
     Dates: start: 20010101
  3. VERAPAMIL [Concomitant]
  4. ASPIRIN [Concomitant]

REACTIONS (1)
  - DYSTONIA [None]
